FAERS Safety Report 5659929-9 (Version None)
Quarter: 2008Q1

REPORT INFORMATION
  Report Type: 
  Country: None (occurrence: None)
  Receive Date: 20080311
  Receipt Date: 20070813
  Transmission Date: 20080703
  Serious: No
  Sender: FDA-Public Use
  Company Number: US-BAYER-200712603BCC

PATIENT
  Age: 18 Year
  Sex: Male
  Weight: 50 kg

DRUGS (6)
  1. ALEVE [Suspect]
     Indication: BACK PAIN
     Dosage: TOTAL DAILY DOSE: 1760 MG  UNIT DOSE: 220 MG
     Route: 048
     Dates: start: 20070813
  2. TRAZODONE HCL [Concomitant]
  3. WELLBUTRIN [Concomitant]
  4. DEPAKOTE [Concomitant]
  5. STRATTERA [Concomitant]
  6. SEROQUEL [Concomitant]

REACTIONS (1)
  - NO ADVERSE EVENT [None]
